FAERS Safety Report 21594014 (Version 3)
Quarter: 2023Q1

REPORT INFORMATION
  Report Type: Spontaneous
  Country: BR (occurrence: BR)
  Receive Date: 20221115
  Receipt Date: 20230327
  Transmission Date: 20230418
  Serious: Yes (Hospitalization, Other)
  Sender: FDA-Public Use
  Company Number: BR-NOVOPROD-977712

PATIENT
  Age: 21 Year
  Sex: Female
  Weight: 51.3 kg

DRUGS (5)
  1. NOVOLIN N [Suspect]
     Active Substance: INSULIN HUMAN
     Indication: Type 1 diabetes mellitus
     Dosage: 55 IU, QD (30 IU OF NPH IN THE MORNING, 15 IU BEFORE LUNCH AND 10 IU AT NIGHT)
     Route: 058
     Dates: start: 202105
  2. NOVOLIN N [Suspect]
     Active Substance: INSULIN HUMAN
     Dosage: 10 IU
     Route: 058
     Dates: start: 20221020
  3. NOVOLIN R [Suspect]
     Active Substance: INSULIN HUMAN
     Indication: Type 1 diabetes mellitus
     Dosage: 5 IU BEFORE LUNCH AND IN THE EVENING IF NECESSARY
     Route: 058
     Dates: start: 202105
  4. NOVOLIN R [Suspect]
     Active Substance: INSULIN HUMAN
     Dosage: 8 IU
     Route: 058
     Dates: start: 20221020
  5. PURAN [Concomitant]
     Active Substance: LEVOTHYROXINE SODIUM
     Indication: Hypothyroidism
     Dosage: 50 MG
     Dates: start: 2006

REACTIONS (5)
  - Injection site infection [Not Recovered/Not Resolved]
  - Necrosis [Recovered/Resolved with Sequelae]
  - Injection site fibrosis [Not Recovered/Not Resolved]
  - Diabetes mellitus inadequate control [Unknown]
  - Wrong technique in product usage process [Unknown]

NARRATIVE: CASE EVENT DATE: 20221025
